FAERS Safety Report 4287175-2 (Version None)
Quarter: 2004Q1

REPORT INFORMATION
  Report Type: 
  Country: None (occurrence: None)
  Receive Date: 20040121
  Receipt Date: 20030924
  Transmission Date: 20041129
  Serious: Yes (Hospitalization)
  Sender: FDA-Public Use
  Company Number: 03P-163-0234899-00

PATIENT
  Age: 86 Year
  Sex: Female
  Weight: 93.441 kg

DRUGS (7)
  1. RYTHMOL [Suspect]
     Indication: ARRHYTHMIA
     Dosage: 150 MG, 3 IN 1 D, PER ORAL
     Route: 048
  2. AMLODIPINE BESYLATE [Concomitant]
  3. DIAZIDE [Concomitant]
  4. ATENOLOL [Concomitant]
  5. ACETYLSALICYLIC ACID SRT [Concomitant]
  6. ATORVASTATIN [Concomitant]
  7. DIAZEPAM [Concomitant]

REACTIONS (9)
  - ANOREXIA [None]
  - BLOOD PRESSURE DECREASED [None]
  - DEAFNESS [None]
  - DIZZINESS [None]
  - FATIGUE [None]
  - MIDDLE EAR EFFUSION [None]
  - NERVOUSNESS [None]
  - SINUSITIS [None]
  - TINNITUS [None]
